FAERS Safety Report 16540797 (Version 1)
Quarter: 2019Q3

REPORT INFORMATION
  Report Type: Spontaneous
  Country: US (occurrence: US)
  Receive Date: 20190707
  Receipt Date: 20190707
  Transmission Date: 20191004
  Serious: Yes (Hospitalization)
  Sender: FDA-Public Use
  Company Number: None

PATIENT
  Age: 80 Year
  Sex: Female
  Weight: 56.25 kg

DRUGS (1)
  1. LOSARTAN/HCTZ [Suspect]
     Active Substance: HYDROCHLOROTHIAZIDE\LOSARTAN

REACTIONS (11)
  - Dizziness [None]
  - Nausea [None]
  - Vertigo [None]
  - Fatigue [None]
  - Loss of consciousness [None]
  - Blood sodium decreased [None]
  - Skin laceration [None]
  - Confusional state [None]
  - Diarrhoea [None]
  - Dehydration [None]
  - Fall [None]

NARRATIVE: CASE EVENT DATE: 20190628
